FAERS Safety Report 8932576 (Version 1)
Quarter: 2012Q4

REPORT INFORMATION
  Report Type: 
  Country: EC (occurrence: EC)
  Receive Date: 20121129
  Receipt Date: 20121129
  Transmission Date: 20130627
  Serious: Yes (Hospitalization)
  Sender: FDA-Public Use
  Company Number: PHHY2012EC109316

PATIENT
  Age: 30 Year
  Sex: Female

DRUGS (1)
  1. TRILEPTAL [Suspect]
     Dosage: 600 mg, UNK
     Route: 048
     Dates: start: 2005

REACTIONS (2)
  - Convulsion [Unknown]
  - Headache [Unknown]
